FAERS Safety Report 8392665-7 (Version None)
Quarter: 2012Q2

REPORT INFORMATION
  Report Type: 
  Country: None (occurrence: None)
  Receive Date: 20120529
  Receipt Date: 20120514
  Transmission Date: 20120825
  Serious: Yes (Hospitalization)
  Sender: FDA-Public Use
  Company Number: AT-WATSON-2012-08519

PATIENT
  Age: 62 Year
  Sex: Female

DRUGS (11)
  1. DIAZEPAM [Suspect]
     Indication: PRODUCT USED FOR UNKNOWN INDICATION
     Dosage: 2 X 5 MG
  2. GABAPENTIN [Suspect]
     Indication: NEURALGIA
     Dosage: 900 MG, DAILY
     Route: 065
  3. HYDROMORPHONE HCL [Suspect]
     Indication: PAIN IN EXTREMITY
  4. FLUOXETINE HCL [Suspect]
     Indication: PRODUCT USED FOR UNKNOWN INDICATION
     Dosage: 40 MG, UNKNOWN
     Route: 065
  5. FENTANYL-100 [Suspect]
     Indication: PAIN IN EXTREMITY
  6. HYDROMORPHONE HCL [Suspect]
     Indication: ARTHRALGIA
     Dosage: 20 MG, BID
     Route: 048
  7. FENTANYL-100 [Suspect]
     Indication: ARTHRALGIA
     Dosage: 75 UG IN 72 HRS INCREASED TO 150 MCG, UNK
     Route: 062
  8. ALPRAZOLAM [Suspect]
     Indication: PRODUCT USED FOR UNKNOWN INDICATION
     Dosage: 0.5 MG, UNKNOWN
     Route: 065
  9. AMITRIPTYLINE HCL [Suspect]
     Indication: PRODUCT USED FOR UNKNOWN INDICATION
     Dosage: 100 MG, UNKNOWN
     Route: 065
  10. HALOPERIDOL [Suspect]
     Indication: DELIRIUM
     Dosage: 5-10 MG EVERY FEW HOURS
     Route: 042
  11. LORAZEPAM [Suspect]
     Indication: DELIRIUM
     Dosage: 2 MG, EVERY FEW HOURS
     Route: 042

REACTIONS (2)
  - CONDITION AGGRAVATED [None]
  - DELIRIUM [None]
